APPROVED DRUG PRODUCT: AMIODARONE HYDROCHLORIDE
Active Ingredient: AMIODARONE HYDROCHLORIDE
Strength: 200MG
Dosage Form/Route: TABLET;ORAL
Application: A074895 | Product #001
Applicant: TEVA PHARMACEUTICALS USA INC
Approved: Apr 16, 1999 | RLD: No | RS: No | Type: DISCN